FAERS Safety Report 16197079 (Version 1)
Quarter: 2019Q2

REPORT INFORMATION
  Report Type: Spontaneous
  Country: US (occurrence: US)
  Receive Date: 20190412
  Receipt Date: 20190412
  Transmission Date: 20190711
  Serious: Yes (Other)
  Sender: FDA-Public Use
  Company Number: None

PATIENT
  Age: 60 Year
  Sex: Female

DRUGS (2)
  1. XTAMPZA [Suspect]
     Active Substance: OXYCODONE
     Indication: ARTHRITIS
  2. XTAMPZA [Suspect]
     Active Substance: OXYCODONE
     Indication: PAIN

REACTIONS (2)
  - Therapy non-responder [None]
  - Blood glucose increased [None]

NARRATIVE: CASE EVENT DATE: 20190408
